FAERS Safety Report 8895703 (Version 1)
Quarter: 2012Q4

REPORT INFORMATION
  Report Type: 
  Country: TH (occurrence: TH)
  Receive Date: 20121108
  Receipt Date: 20121108
  Transmission Date: 20130627
  Serious: Yes (Death, Hospitalization)
  Sender: FDA-Public Use
  Company Number: TH-BAXTER-2012BAX022160

PATIENT
  Sex: Male

DRUGS (1)
  1. DIANEAL LOW CALCIUM (2.5 PERCENT MEQ/L) PERITONEAL DIALYSIS SOL WITH 1 [Suspect]
     Indication: CAPD
     Route: 033
     Dates: start: 20100112, end: 20121001

REACTIONS (2)
  - Sepsis [Fatal]
  - Pneumonia [Unknown]
